FAERS Safety Report 5524024-6 (Version None)
Quarter: 2007Q4

REPORT INFORMATION
  Report Type: 
  Country: None (occurrence: None)
  Receive Date: 20071121
  Receipt Date: 20071031
  Transmission Date: 20080405
  Serious: No
  Sender: FDA-Public Use
  Company Number: US-BOEHRINGER INGELHEIM PHARMACEUTICALS, INC.-2007-BP-23836PF

PATIENT
  Sex: Female
  Weight: 64 kg

DRUGS (9)
  1. SPIRIVA [Suspect]
     Indication: DRUG USE FOR UNKNOWN INDICATION
     Route: 055
     Dates: start: 20050101, end: 20071008
  2. CHANTIX [Suspect]
     Indication: SMOKING CESSATION THERAPY
     Dates: start: 20070817
  3. PREDNISONE TAB [Concomitant]
  4. LIPITOR [Concomitant]
  5. LOTREL [Concomitant]
     Indication: HYPERTENSION
  6. LISINOPRIL [Concomitant]
     Indication: HYPERTENSION
  7. ASPIRIN [Concomitant]
  8. OCUVITE VITAMIN [Concomitant]
  9. GENERIC PLENDIL [Concomitant]
     Indication: HYPERTENSION

REACTIONS (6)
  - ABNORMAL DREAMS [None]
  - DRY MOUTH [None]
  - FLATULENCE [None]
  - NAUSEA [None]
  - SALIVA ALTERED [None]
  - SLEEP DISORDER [None]
